FAERS Safety Report 12319134 (Version 1)
Quarter: 2016Q2

REPORT INFORMATION
  Report Type: Spontaneous
  Country: AU (occurrence: AU)
  Receive Date: 20160429
  Receipt Date: 20160429
  Transmission Date: 20160815
  Serious: Yes (Other)
  Sender: FDA-Public Use
  Company Number: AU-JNJFOC-20160425373

PATIENT
  Age: 76 Year
  Sex: Female
  Weight: 81 kg

DRUGS (16)
  1. MOBIC [Concomitant]
     Active Substance: MELOXICAM
     Route: 065
  2. METHOTREXATE [Concomitant]
     Active Substance: METHOTREXATE
     Route: 065
  3. WARFARIN SODIUM. [Concomitant]
     Active Substance: WARFARIN SODIUM
     Route: 065
  4. KARVEZIDE [Concomitant]
     Active Substance: HYDROCHLOROTHIAZIDE\IRBESARTAN
     Route: 065
  5. NORVASC [Concomitant]
     Active Substance: AMLODIPINE BESYLATE
     Route: 065
  6. WARFARIN SODIUM. [Concomitant]
     Active Substance: WARFARIN SODIUM
     Route: 065
  7. XARELTO [Suspect]
     Active Substance: RIVAROXABAN
     Indication: CEREBROVASCULAR ACCIDENT PROPHYLAXIS
     Route: 048
     Dates: start: 201512, end: 20160421
  8. OROXINE [Concomitant]
     Active Substance: LEVOTHYROXINE SODIUM
     Route: 065
  9. SOTALOL SANDOZ [Concomitant]
     Active Substance: SOTALOL
     Dosage: 1/2 TABLET
     Route: 065
  10. VENTOLIN RESPIRATOR [Concomitant]
     Dosage: 100 MCG/DOSE; 2 PUFFS
     Route: 065
  11. PLAQUENIL [Concomitant]
     Active Substance: HYDROXYCHLOROQUINE SULFATE
     Route: 065
  12. XARELTO [Suspect]
     Active Substance: RIVAROXABAN
     Indication: ATRIAL FIBRILLATION
     Route: 048
     Dates: start: 201512, end: 20160421
  13. ELOCON [Concomitant]
     Active Substance: MOMETASONE FUROATE
     Route: 065
  14. VALIUM [Concomitant]
     Active Substance: DIAZEPAM
     Dosage: 1/2 TO 1 TABLET
     Route: 065
  15. WARFARIN SODIUM. [Concomitant]
     Active Substance: WARFARIN SODIUM
     Route: 065
  16. ZINNAT [Concomitant]
     Active Substance: CEFUROXIME AXETIL
     Route: 065

REACTIONS (2)
  - Rash generalised [Recovered/Resolved with Sequelae]
  - Wound secretion [Recovered/Resolved with Sequelae]

NARRATIVE: CASE EVENT DATE: 201512
